FAERS Safety Report 6905241-7 (Version None)
Quarter: 2010Q3

REPORT INFORMATION
  Report Type: 
  Country: None (occurrence: None)
  Receive Date: 20100802
  Receipt Date: 20100720
  Transmission Date: 20110219
  Serious: Yes (Hospitalization)
  Sender: FDA-Public Use
  Company Number: 011779

PATIENT
  Sex: Male
  Weight: 85.7 kg

DRUGS (5)
  1. KEPPRA [Suspect]
     Indication: CONVULSION
     Dosage: (1500 MG, 1000MG AM+500MG PM ORAL)
     Route: 048
     Dates: start: 20100401
  2. LACOSAMIDE [Suspect]
     Indication: CONVULSION
     Dosage: (200 MG BID ORAL), (ORAL)
     Route: 048
     Dates: start: 20040101
  3. KEPPRA [Suspect]
     Indication: CONVULSION
     Dosage: (ORAL)
     Route: 048
     Dates: start: 20030101, end: 20100401
  4. NEURONTIN [Suspect]
     Indication: SIMPLE PARTIAL SEIZURES
     Dates: start: 20030101, end: 20100401
  5. PHENYTEK /00017401/ [Concomitant]

REACTIONS (8)
  - AGITATION [None]
  - CONDITION AGGRAVATED [None]
  - CONVULSION [None]
  - DEHYDRATION [None]
  - MYOCLONUS [None]
  - STRESS [None]
  - TIC [None]
  - WEIGHT DECREASED [None]
